FAERS Safety Report 5277071-6 (Version None)
Quarter: 2007Q1

REPORT INFORMATION
  Report Type: 
  Country: None (occurrence: None)
  Receive Date: 20070327
  Receipt Date: 20070314
  Transmission Date: 20070707
  Serious: Yes (Hospitalization)
  Sender: FDA-Public Use
  Company Number: PHRM2007FR01060

PATIENT
  Age: 75 Year
  Sex: Female

DRUGS (2)
  1. GYNERGENE-CAFEINE [Suspect]
     Indication: MIGRAINE
     Route: 048
  2. SEGLOR [Suspect]
     Indication: MIGRAINE
     Dosage: 10 MG PER DAY
     Route: 048

REACTIONS (7)
  - ARTERIOSPASM CORONARY [None]
  - BUNDLE BRANCH BLOCK LEFT [None]
  - CHEST PAIN [None]
  - SENSE OF OPPRESSION [None]
  - TROPONIN INCREASED [None]
  - VENTRICULAR DYSKINESIA [None]
  - VENTRICULAR HYPOKINESIA [None]
